FAERS Safety Report 11031086 (Version 1)
Quarter: 2015Q2

REPORT INFORMATION
  Report Type: Spontaneous
  Country: US (occurrence: US)
  Receive Date: 20150415
  Receipt Date: 20150415
  Transmission Date: 20150821
  Serious: No
  Sender: FDA-Public Use
  Company Number: US-ASTRAZENECA-2015SE03245

PATIENT
  Age: 86 Year
  Sex: Female

DRUGS (1)
  1. PRILOSEC OTC [Suspect]
     Active Substance: OMEPRAZOLE MAGNESIUM
     Dosage: 1 PILL ONCE A DAY FOR A YEAR SO FAR
     Route: 048

REACTIONS (3)
  - Dry skin [Not Recovered/Not Resolved]
  - Night sweats [Not Recovered/Not Resolved]
  - Incorrect drug administration duration [Unknown]
